FAERS Safety Report 18093068 (Version 2)
Quarter: 2021Q2

REPORT INFORMATION
  Report Type: Report from Study
  Country: JP (occurrence: JP)
  Receive Date: 20200730
  Receipt Date: 20210424
  Transmission Date: 20210717
  Serious: Yes (Life-Threatening, Hospitalization, Other)
  Sender: FDA-Public Use
  Company Number: JP-JNJFOC-20200729665

PATIENT
  Age: 40 Year
  Sex: Male

DRUGS (11)
  1. LIALDA [Concomitant]
     Active Substance: MESALAMINE
     Dosage: UNK
     Route: 065
     Dates: start: 20181017, end: 20190104
  2. URIADEC [Concomitant]
     Active Substance: TOPIROXOSTAT
     Dosage: UNK
     Route: 065
     Dates: start: 20181017
  3. PREDNISOLONE. [Suspect]
     Active Substance: PREDNISOLONE
     Indication: DERMATITIS
     Dosage: 40 MILLIGRAM, QD
     Route: 048
     Dates: start: 20160810, end: 20190104
  4. REMICADE [Suspect]
     Active Substance: INFLIXIMAB
     Indication: COLITIS ULCERATIVE
     Dosage: UNK
     Route: 042
  5. IMURAN [Concomitant]
     Active Substance: AZATHIOPRINE
     Dosage: UNK
     Route: 065
     Dates: start: 20160810, end: 20190104
  6. MAINTATE TABLETS 2.5MG [Suspect]
     Active Substance: BISOPROLOL FUMARATE
     Indication: HYPERTENSION
     Dosage: 5 MILLIGRAM, QD
     Route: 048
     Dates: start: 20181212, end: 20190514
  7. ZINC ACETATE [Concomitant]
     Active Substance: ZINC ACETATE
     Dosage: UNK
     Route: 065
     Dates: start: 20181226
  8. PENTASA [Suspect]
     Active Substance: MESALAMINE
     Indication: COLITIS ULCERATIVE
     Dosage: 1 GRAM, QD
     Route: 054
     Dates: start: 20180905, end: 20190104
  9. LAC?B [Concomitant]
     Active Substance: BIFIDOBACTERIUM SPP.
     Dosage: UNK
     Route: 065
     Dates: start: 20170419
  10. BIO?THREE [Concomitant]
     Active Substance: HERBALS
     Dosage: UNK
     Route: 065
     Dates: start: 20170419
  11. TOFACITINIB CITRATE [Suspect]
     Active Substance: TOFACITINIB CITRATE
     Indication: COLITIS ULCERATIVE
     Dosage: 10 MG, 2X/DAY
     Route: 048
     Dates: start: 20181226, end: 20190104

REACTIONS (2)
  - Drug ineffective [Unknown]
  - Rectal perforation [Recovered/Resolved with Sequelae]

NARRATIVE: CASE EVENT DATE: 20190104
